FAERS Safety Report 7334523-2 (Version None)
Quarter: 2011Q1

REPORT INFORMATION
  Report Type: 
  Country: None (occurrence: None)
  Receive Date: 20110307
  Receipt Date: 20110222
  Transmission Date: 20110831
  Serious: Yes (Other)
  Sender: FDA-Public Use
  Company Number: CH-ELI_LILLY_AND_COMPANY-CH201102006312

PATIENT
  Age: 32 Year
  Sex: Female

DRUGS (5)
  1. ABILIFY [Concomitant]
     Indication: SCHIZOPHRENIA
     Dosage: 15 MG, DAILY (1/D)
     Dates: start: 20080101, end: 20100101
  2. STILNOX [Concomitant]
     Indication: SLEEP DISORDER
     Dosage: 12.5 MG, DAILY (1/D)
     Dates: start: 20080101
  3. ZYPREXA [Suspect]
     Indication: SCHIZOPHRENIA
     Dosage: 7.5 MG, DAILY (1/D)
  4. CIPRALEX [Concomitant]
     Indication: SCHIZOPHRENIA
     Dosage: 10 MG, 2/D
     Dates: start: 20080101
  5. TEMESTA [Concomitant]
     Dates: end: 20100201

REACTIONS (3)
  - PREMATURE RUPTURE OF MEMBRANES [None]
  - CHORIOAMNIONITIS [None]
  - DRUG EXPOSURE DURING PREGNANCY [None]
